FAERS Safety Report 5695032-X (Version None)
Quarter: 2008Q2

REPORT INFORMATION
  Report Type: 
  Country: None (occurrence: None)
  Receive Date: 20080404
  Receipt Date: 20080325
  Transmission Date: 20081010
  Serious: Yes (Death, Other)
  Sender: FDA-Public Use
  Company Number: GB-GENENTECH-225181

PATIENT
  Sex: Female

DRUGS (14)
  1. MABTHERA [Suspect]
     Indication: SYSTEMIC LUPUS ERYTHEMATOSUS
     Dosage: 375 MG/M2, 1/WEEK
     Route: 042
     Dates: start: 20020801, end: 20050901
  2. MABTHERA [Suspect]
     Dosage: 375 MG/M2, 1/WEEK
     Dates: start: 20050401, end: 20050501
  3. MABTHERA [Suspect]
     Dosage: 375 MG/M2, SINGLE
     Dates: start: 20051101
  4. AMLODIPINE [Concomitant]
     Indication: RAYNAUD'S PHENOMENON
     Dosage: 5 MG, QOD
     Route: 048
     Dates: start: 20020101
  5. CALCICHEW D3 [Concomitant]
     Indication: OSTEOPOROSIS
     Dosage: 1 UNK, BID
     Route: 048
     Dates: start: 20030101
  6. HYDROXYCHLOROQUINE [Concomitant]
     Indication: SYSTEMIC LUPUS ERYTHEMATOSUS
     Dosage: 300 MG, UNK
     Route: 048
     Dates: start: 20020101
  7. LEVOTHYROXINE SODIUM [Concomitant]
     Indication: HYPOTHYROIDISM
     Dosage: 75 A?G, UNK
     Dates: start: 19900101
  8. CLARITIN [Concomitant]
     Indication: HYPERSENSITIVITY
     Dosage: 1 UNK, QOD
     Route: 048
     Dates: start: 20040101
  9. NUVELLE [Concomitant]
     Indication: PREMATURE MENOPAUSE
     Dosage: 1 UNK, QOD
     Dates: start: 19930101
  10. FOLIC ACID [Concomitant]
     Indication: DRUG USE FOR UNKNOWN INDICATION
     Route: 048
  11. IMMUNE GLOBULIN INTRAVENOUS (HUMAN) [Concomitant]
     Indication: DRUG USE FOR UNKNOWN INDICATION
  12. LEVOMEPROMAZINE [Concomitant]
     Indication: DRUG USE FOR UNKNOWN INDICATION
     Route: 048
  13. PROBENECID [Concomitant]
     Indication: DRUG USE FOR UNKNOWN INDICATION
  14. PREDNISOLONE [Concomitant]
     Indication: SYSTEMIC LUPUS ERYTHEMATOSUS
     Dates: start: 20020101, end: 20030101

REACTIONS (3)
  - BONE MARROW TOXICITY [None]
  - PROGRESSIVE MULTIFOCAL LEUKOENCEPHALOPATHY [None]
  - RESPIRATORY FAILURE [None]
